FAERS Safety Report 9428236 (Version 1)
Quarter: 2013Q3

REPORT INFORMATION
  Report Type: Spontaneous
  Country: US (occurrence: US)
  Receive Date: 20130730
  Receipt Date: 20130730
  Transmission Date: 20140515
  Serious: No
  Sender: FDA-Public Use
  Company Number: US-GLAXOSMITHKLINE-A0995788A

PATIENT
  Age: 41 Year
  Sex: Male

DRUGS (2)
  1. ZANTAC [Suspect]
     Indication: GASTROOESOPHAGEAL REFLUX DISEASE
     Dosage: 150MG TWICE PER DAY
     Route: 048
  2. CLOPIDOGREL [Concomitant]

REACTIONS (1)
  - Drug screen false positive [Unknown]
